FAERS Safety Report 8236683-8 (Version None)
Quarter: 2012Q1

REPORT INFORMATION
  Report Type: 
  Country: None (occurrence: None)
  Receive Date: 20120309
  Receipt Date: 20110201
  Transmission Date: 20120608
  Serious: Yes (Other)
  Sender: FDA-Public Use
  Company Number: PHHY2011US01664

PATIENT
  Age: 37 Year
  Sex: Female

DRUGS (2)
  1. ACETAMINOPHEN [Concomitant]
  2. EXTAVIA [Suspect]
     Indication: MULTIPLE SCLEROSIS
     Dosage: 0.062 MG, QOD, SUBCUTANEOUS
     Route: 058
     Dates: start: 20101227

REACTIONS (6)
  - BALANCE DISORDER [None]
  - FATIGUE [None]
  - INFLUENZA LIKE ILLNESS [None]
  - DIZZINESS [None]
  - DEPRESSION [None]
  - FEELING ABNORMAL [None]
